FAERS Safety Report 24062045 (Version 2)
Quarter: 2024Q3

REPORT INFORMATION
  Report Type: Spontaneous
  Country: JP (occurrence: None)
  Receive Date: 20240708
  Receipt Date: 20240709
  Transmission Date: 20241016
  Serious: Yes (Life-Threatening, Other)
  Sender: ASTRAZENECA
  Company Number: 2024A154019

PATIENT
  Age: 59 Year
  Sex: Male
  Weight: 54 kg

DRUGS (4)
  1. SAPHNELO [Suspect]
     Active Substance: ANIFROLUMAB-FNIA
     Indication: Systemic lupus erythematosus
     Route: 041
     Dates: start: 20240614, end: 20240614
  2. RABEPRAZOLE SODIUM [Concomitant]
     Active Substance: RABEPRAZOLE SODIUM
  3. PLAQUENIL [Concomitant]
     Active Substance: HYDROXYCHLOROQUINE SULFATE
     Dosage: DOSE UNKNOWN
  4. PREDNISOLONE [Concomitant]
     Active Substance: PREDNISOLONE
     Dosage: NUMBER OF SEPARATE DOSAGES UNKNOWN

REACTIONS (1)
  - Anaphylactic shock [Recovered/Resolved]

NARRATIVE: CASE EVENT DATE: 20240614
